FAERS Safety Report 17249822 (Version 1)
Quarter: 2020Q1

REPORT INFORMATION
  Report Type: Other
  Country: DE (occurrence: DE)
  Receive Date: 20200109
  Receipt Date: 20200109
  Transmission Date: 20200409
  Serious: Yes (Other)
  Sender: FDA-Public Use
  Company Number: DE-MACLEODS PHARMACEUTICALS US LTD-MAC2019021033

PATIENT

DRUGS (10)
  1. LEVOFLOXACIN. [Suspect]
     Active Substance: LEVOFLOXACIN
     Indication: PROSTATE INFECTION
     Dosage: UNK UNK, 10 DAYS / 1 PER DAY HAVE THE DOSE AFTER DIARRHEA, 10 DAYS / ONCE PER DAY, FIRST 500 MG THEN
     Route: 048
     Dates: start: 20180408, end: 201804
  2. LEVOFLOXACIN. [Suspect]
     Active Substance: LEVOFLOXACIN
     Indication: PROSTATITIS
     Dosage: UNK, QD, 1/2 DOSAGE FORM, DAILY
     Route: 065
     Dates: start: 20180505
  3. CIPROFLOXACIN. [Suspect]
     Active Substance: CIPROFLOXACIN
     Indication: BACTERIAL INFECTION
  4. AMOXI-CLAVULAN [Concomitant]
     Indication: BACTERIAL INFECTION
  5. AMOXICILLIN. [Concomitant]
     Active Substance: AMOXICILLIN
     Indication: PRODUCT USED FOR UNKNOWN INDICATION
     Dosage: UNK, QD, 1 OT, QD (10 DAYS, 1 PER DAY)
     Route: 065
     Dates: start: 20180601, end: 201806
  6. LEVOFLOXACIN. [Suspect]
     Active Substance: LEVOFLOXACIN
     Indication: BACTERIAL INFECTION
     Dosage: 1 DOSAGE FORM, QD, 1/2 DOSAGE FORM, DAILY
     Route: 065
     Dates: start: 20180427
  7. CIPROFLOXACIN. [Suspect]
     Active Substance: CIPROFLOXACIN
     Indication: PROSTATE INFECTION
     Dosage: UNK, 10 DAYS / ONCE PER DAY
     Route: 048
     Dates: start: 20180518, end: 201805
  8. MOXIFLOXACIN. [Suspect]
     Active Substance: MOXIFLOXACIN
     Indication: PRODUCT USED FOR UNKNOWN INDICATION
     Dosage: UNK
     Route: 048
     Dates: start: 20180408, end: 20180701
  9. PROSTAGUTT [Concomitant]
     Indication: PRODUCT USED FOR UNKNOWN INDICATION
     Dosage: UNK
     Route: 065
  10. AMOXI-CLAVULAN [Concomitant]
     Indication: PROSTATE INFECTION
     Dosage: UNK, 10 DAYS, 1 PER DAY
     Route: 065
     Dates: start: 20180601, end: 201806

REACTIONS (28)
  - Benign prostatic hyperplasia [Unknown]
  - Vision blurred [Not Recovered/Not Resolved]
  - Haematospermia [Unknown]
  - Pain [Recovering/Resolving]
  - Oedema peripheral [Unknown]
  - Arthritis [Unknown]
  - Arthralgia [Recovering/Resolving]
  - Lacrimation increased [Not Recovered/Not Resolved]
  - Visual impairment [Not Recovered/Not Resolved]
  - Joint swelling [Unknown]
  - Arthralgia [Recovering/Resolving]
  - Joint effusion [Unknown]
  - Sexual dysfunction [Unknown]
  - Myalgia [Unknown]
  - Tendonitis [Recovering/Resolving]
  - Musculoskeletal discomfort [Unknown]
  - Nocturia [Recovering/Resolving]
  - Abdominal pain lower [Unknown]
  - Tendon discomfort [Unknown]
  - Feeling abnormal [Unknown]
  - Diarrhoea [Recovered/Resolved]
  - Musculoskeletal pain [Unknown]
  - Rotator cuff syndrome [Recovering/Resolving]
  - Joint swelling [Not Recovered/Not Resolved]
  - Joint swelling [Recovering/Resolving]
  - Pain [Not Recovered/Not Resolved]
  - Pruritus genital [Unknown]
  - Pelvic pain [Unknown]

NARRATIVE: CASE EVENT DATE: 2018
